FAERS Safety Report 7788605-1 (Version None)
Quarter: 2011Q3

REPORT INFORMATION
  Report Type: 
  Country: None (occurrence: None)
  Receive Date: 20110930
  Receipt Date: 20110923
  Transmission Date: 20111222
  Serious: Yes (Hospitalization)
  Sender: FDA-Public Use
  Company Number: DE-UCBSA-001184

PATIENT
  Sex: Female
  Weight: 75 kg

DRUGS (34)
  1. NEUPRO [Suspect]
     Route: 062
     Dates: start: 20070530, end: 20070611
  2. SELEGILIN [Concomitant]
     Dates: start: 20061122, end: 20081001
  3. CARBIDOPA + LEVODOPA [Concomitant]
     Dosage: 100/25 MG
     Dates: start: 20061105
  4. AZILECT [Concomitant]
     Indication: PARKINSON'S DISEASE
     Dates: start: 20081001
  5. NACOM RETARD [Concomitant]
     Indication: PARKINSON'S DISEASE
     Dosage: 100/25 MG ONCE DAILY
     Dates: start: 20060801, end: 20061117
  6. CARBIDOPA + LEVODOPA [Concomitant]
     Dosage: 100/25MG
     Dates: start: 20080716, end: 20080930
  7. CARBIDOPA + LEVODOPA [Concomitant]
     Indication: PARKINSON'S DISEASE
     Dosage: 200/50 MG: 3X0.5
     Dates: start: 20021008, end: 20060801
  8. CARBIDOPA + LEVODOPA [Concomitant]
     Dosage: 100/25 MG: 3X0.5
     Dates: start: 20070613, end: 20070701
  9. MADOPAR LT [Concomitant]
     Dosage: 2-3 TIMES DAILY AS REQUIRED 100/25 MG
     Dates: start: 20080520, end: 20080715
  10. DOPADURA [Concomitant]
     Indication: PARKINSON'S DISEASE
     Dosage: 200/50 MG: 1/2-1/2-0-0
     Dates: start: 20080716, end: 20080930
  11. DOPADURA [Concomitant]
     Dosage: 200/50MG; OTHER 4X1/2
     Dates: start: 20081001, end: 20081106
  12. DOPADURA [Concomitant]
     Dosage: 200/50MG; OTHER 3X1/2
     Dates: start: 20081107, end: 20100118
  13. NEUPRO [Suspect]
     Route: 062
     Dates: start: 20070516, end: 20070529
  14. NACOM RETARD [Concomitant]
     Dosage: 100/25 MG + 2-3 X 0.5
     Dates: start: 20061118, end: 20070327
  15. NACOM RETARD [Concomitant]
     Dosage: 100/25 MG TWICE DAILY
     Dates: start: 20070328, end: 20081106
  16. CARBIDOPA + LEVODOPA [Concomitant]
     Dosage: 100/25MG OTHER 1-1-1/2
     Dates: start: 20081107, end: 20090118
  17. MADOPAR LT [Concomitant]
     Dosage: 100/25MG
     Dates: start: 20091015
  18. DOPADURA [Concomitant]
     Dates: start: 20091016
  19. NEUPRO [Suspect]
     Route: 062
     Dates: start: 20070612
  20. CARBIDOPA + LEVODOPA [Concomitant]
     Dosage: 100/25MG
     Dates: start: 20081001, end: 20081106
  21. MADOPAR LT [Concomitant]
     Dosage: 100/25 MG: 1/2 DAILY
     Dates: start: 20080716, end: 20081001
  22. DOPADURA [Concomitant]
     Dosage: 200/50MG; OTHER 3X1/2
     Dates: start: 20090722, end: 20091015
  23. NEUPRO [Suspect]
     Indication: PARKINSON'S DISEASE
     Route: 062
     Dates: start: 20070417, end: 20070515
  24. CARBIDOPA + LEVODOPA [Concomitant]
     Dosage: 100/25 MG: 2X0.5
     Dates: start: 20070701, end: 20080715
  25. MADOPAR LT [Concomitant]
     Dosage: 100/25MG
     Dates: start: 20081002, end: 20100119
  26. LEVODOPA [Concomitant]
     Indication: PARKINSON'S DISEASE
     Dosage: 100 MG IF REQUIRED ONE IN THE EVENING
     Dates: start: 20071105
  27. DOPADURA [Concomitant]
     Dosage: 200/50M; OTHER 2X1/2
     Dates: start: 20090119, end: 20090721
  28. SELEGILIN [Concomitant]
     Indication: PARKINSON'S DISEASE
     Dates: start: 20000401, end: 20060801
  29. CARBIDOPA + LEVODOPA [Concomitant]
     Dosage: 100/25 MG: 2 X 0.5
     Dates: start: 20070327, end: 20070612
  30. CARBIDOPA + LEVODOPA [Concomitant]
     Dosage: 100/25MG; 0-0-0-1
     Dates: start: 20090119, end: 20090721
  31. MADOPAR LT [Concomitant]
     Dosage: 100/25MG
     Dates: start: 20090119, end: 20091014
  32. CARBIDOPA + LEVODOPA [Concomitant]
     Dosage: 100/25MG; 0THER 2X1/2
     Dates: start: 20100119
  33. MADOPAR LT [Concomitant]
     Indication: PARKINSON'S DISEASE
     Dosage: 100/25 MG
     Dates: start: 20060801
  34. MADOPAR LT [Concomitant]
     Dosage: 100/25 MG ONCE DAILY
     Dates: start: 20080116, end: 20080519

REACTIONS (1)
  - PARKINSON'S DISEASE [None]
